FAERS Safety Report 8094812-3 (Version None)
Quarter: 2012Q1

REPORT INFORMATION
  Report Type: 
  Country: None (occurrence: None)
  Receive Date: 20120129
  Receipt Date: 20111211
  Transmission Date: 20120608
  Serious: No
  Sender: FDA-Public Use
  Company Number: US-ABBOTT-11P-163-0882584-00

PATIENT
  Age: 31 Year
  Sex: Female

DRUGS (3)
  1. FISH OIL [Concomitant]
     Indication: PRODUCT USED FOR UNKNOWN INDICATION
  2. HUMIRA [Suspect]
     Indication: PSORIATIC ARTHROPATHY
     Dates: start: 20111203
  3. PREDNISONE TAB [Concomitant]
     Indication: PRODUCT USED FOR UNKNOWN INDICATION

REACTIONS (8)
  - BREAST TENDERNESS [None]
  - ARTHRALGIA [None]
  - INFLUENZA LIKE ILLNESS [None]
  - ASTHENIA [None]
  - BREAST DISORDER FEMALE [None]
  - INJECTION SITE RASH [None]
  - CHILLS [None]
  - FATIGUE [None]
